FAERS Safety Report 8435335-9 (Version None)
Quarter: 2012Q2

REPORT INFORMATION
  Report Type: 
  Country: None (occurrence: None)
  Receive Date: 20120608
  Receipt Date: 20120608
  Transmission Date: 20120825
  Serious: Yes (Hospitalization)
  Sender: FDA-Public Use
  Company Number: None

PATIENT
  Sex: Female
  Weight: 84 kg

DRUGS (1)
  1. SULFAMETHOXAZOLE AND TRIMETHOPRIM [Suspect]
     Indication: CELLULITIS
     Dosage: BACTRIM DS 1 TABLET, BID, PO
     Route: 048
     Dates: start: 20120518, end: 20120522

REACTIONS (7)
  - VOMITING [None]
  - RASH [None]
  - NAUSEA [None]
  - PYREXIA [None]
  - PANCYTOPENIA [None]
  - HYPONATRAEMIA [None]
  - RENAL FAILURE [None]
